FAERS Safety Report 25066854 (Version 1)
Quarter: 2025Q1

REPORT INFORMATION
  Report Type: Spontaneous
  Country: CA (occurrence: CA)
  Receive Date: 20250312
  Receipt Date: 20250312
  Transmission Date: 20250408
  Serious: Yes (Death, Congenital Anomaly)
  Sender: JOHNSON AND JOHNSON
  Company Number: CA-JNJFOC-20250323446

PATIENT

DRUGS (1)
  1. REMICADE [Suspect]
     Active Substance: INFLIXIMAB
     Indication: Product used for unknown indication
     Route: 064

REACTIONS (1)
  - Congenital central nervous system anomaly [Fatal]
